FAERS Safety Report 14405154 (Version 1)
Quarter: 2018Q1

REPORT INFORMATION
  Report Type: Spontaneous
  Country: US (occurrence: US)
  Receive Date: 20180118
  Receipt Date: 20180118
  Transmission Date: 20180509
  Serious: No
  Sender: FDA-Public Use
  Company Number: US-JNJFOC-20171209664

PATIENT
  Sex: Male
  Weight: 113.4 kg

DRUGS (10)
  1. RISPERDAL [Suspect]
     Active Substance: RISPERIDONE
     Indication: DEMENTIA
     Route: 048
  2. COGENTIN [Suspect]
     Active Substance: BENZTROPINE MESYLATE
     Indication: SCHIZOPHRENIA
     Route: 048
     Dates: start: 2012
  3. COGENTIN [Suspect]
     Active Substance: BENZTROPINE MESYLATE
     Indication: BIPOLAR DISORDER
     Route: 048
     Dates: start: 2012
  4. COGENTIN [Suspect]
     Active Substance: BENZTROPINE MESYLATE
     Indication: DEMENTIA
     Route: 048
     Dates: start: 2012
  5. RISPERDAL [Suspect]
     Active Substance: RISPERIDONE
     Indication: BIPOLAR DISORDER
     Route: 048
  6. RISPERDAL [Suspect]
     Active Substance: RISPERIDONE
     Indication: SCHIZOPHRENIA
     Route: 048
  7. HALDOL [Suspect]
     Active Substance: HALOPERIDOL
     Indication: PRODUCT USED FOR UNKNOWN INDICATION
     Route: 065
  8. CYCLOBENZAPRINE. [Suspect]
     Active Substance: CYCLOBENZAPRINE
     Indication: DEMENTIA
     Route: 048
     Dates: start: 2012
  9. CYCLOBENZAPRINE. [Suspect]
     Active Substance: CYCLOBENZAPRINE
     Indication: BIPOLAR DISORDER
     Route: 048
     Dates: start: 2012
  10. CYCLOBENZAPRINE. [Suspect]
     Active Substance: CYCLOBENZAPRINE
     Indication: SCHIZOPHRENIA
     Route: 048
     Dates: start: 2012

REACTIONS (1)
  - Hypersensitivity [Unknown]
